FAERS Safety Report 9651476 (Version 2)
Quarter: 2013Q4

REPORT INFORMATION
  Report Type: Spontaneous
  Country: US (occurrence: US)
  Receive Date: 20131029
  Receipt Date: 20131029
  Transmission Date: 20140711
  Serious: No
  Sender: FDA-Public Use
  Company Number: US201203008324

PATIENT
  Age: 45 Year
  Sex: Male
  Weight: 135.15 kg

DRUGS (19)
  1. BYDUREON 2MG VIAL + SYRINGE [Suspect]
     Indication: TYPE 2 DIABETES MELLITUS
     Route: 058
     Dates: start: 20120326
  2. BYETTA PEN DISPOSABLE [Suspect]
     Indication: TYPE 2 DIABETES MELLITUS
     Dosage: THERAPY STARTED IN 2008 OR 2009 UPTO 25APR2012 AND RESTARTED ABT 2 MONTHS AGO?C073989A,NOV2014
     Route: 058
     Dates: end: 20120425
  3. EXENATIDE 10MCG PEN, DISPOSABLE DEVICE [Concomitant]
  4. GLIMEPIRIDE [Concomitant]
     Indication: TYPE 2 DIABETES MELLITUS
     Route: 048
  5. DILTIAZEM HCL [Concomitant]
     Indication: CARDIAC DISORDER
     Route: 048
  6. LISINOPRIL [Concomitant]
     Indication: PROPHYLAXIS
     Route: 048
     Dates: start: 20120327
  7. WELCHOL [Concomitant]
     Indication: TYPE 2 DIABETES MELLITUS
     Route: 048
  8. CILOSTAZOL [Concomitant]
     Indication: MUSCLE SPASMS
     Route: 048
  9. LOVAZA [Concomitant]
     Indication: ROUTINE HEALTH MAINTENANCE
     Route: 048
  10. FUROSEMIDE [Concomitant]
     Indication: DIURETIC THERAPY
     Route: 048
  11. CRESTOR [Concomitant]
     Indication: BLOOD CHOLESTEROL INCREASED
     Route: 048
  12. NUVIGIL [Concomitant]
     Indication: SLEEP DISORDER
     Route: 048
  13. CARVEDILOL [Concomitant]
     Indication: CARDIAC DISORDER
     Route: 048
  14. NIASPAN ER [Concomitant]
     Indication: BLOOD CHOLESTEROL INCREASED
     Route: 048
  15. ABILIFY [Concomitant]
     Indication: AFFECTIVE DISORDER
     Route: 048
  16. ABILIFY [Concomitant]
     Indication: AFFECTIVE DISORDER
     Route: 048
  17. CLOZAPINE [Concomitant]
     Indication: AFFECTIVE DISORDER
     Route: 048
  18. PROAIR [Concomitant]
     Indication: ASTHMA
     Route: 055
  19. SPIRIVA [Concomitant]
     Indication: ASTHMA
     Route: 055

REACTIONS (19)
  - Chest pain [Recovering/Resolving]
  - Dyspnoea [Recovering/Resolving]
  - Blood glucose increased [Unknown]
  - Glycosylated haemoglobin increased [Not Recovered/Not Resolved]
  - Abdominal pain upper [Recovering/Resolving]
  - Abdominal distension [Recovering/Resolving]
  - Diarrhoea [Unknown]
  - Flatulence [Unknown]
  - Injection site nodule [Recovered/Resolved]
  - Gastrointestinal hypomotility [Unknown]
  - Hyperhidrosis [Unknown]
  - Dry skin [Unknown]
  - Swelling face [Unknown]
  - Infection [Unknown]
  - Musculoskeletal stiffness [Unknown]
  - Feeling jittery [Unknown]
  - Weight increased [Unknown]
  - Headache [Unknown]
  - Asthenia [Unknown]
